FAERS Safety Report 4416975-0 (Version None)
Quarter: 2004Q3

REPORT INFORMATION
  Report Type: 
  Country: None (occurrence: None)
  Receive Date: 20040806
  Receipt Date: 20031215
  Transmission Date: 20050211
  Serious: No
  Sender: FDA-Public Use
  Company Number: US-GLAXOSMITHKLINE-A0443210A

PATIENT
  Age: 65 Year
  Sex: Male

DRUGS (3)
  1. MALARONE [Suspect]
     Indication: MALARIA PROPHYLAXIS
     Dosage: 250MG PER DAY
     Route: 048
     Dates: start: 20030923, end: 20030923
  2. ATENOLOL [Concomitant]
  3. ASPIRIN [Concomitant]

REACTIONS (2)
  - HEART RATE INCREASED [None]
  - INSOMNIA [None]
